FAERS Safety Report 4433872-5 (Version None)
Quarter: 2004Q3

REPORT INFORMATION
  Report Type: 
  Country: None (occurrence: None)
  Receive Date: 20040824
  Receipt Date: 20040824
  Transmission Date: 20050211
  Serious: Yes (Life-Threatening)
  Sender: FDA-Public Use
  Company Number: None

PATIENT
  Age: 31 Year
  Sex: Female
  Weight: 81.6475 kg

DRUGS (2)
  1. EFFEXOR [Suspect]
     Dosage: 4X DAILY
  2. PAXIL CR [Suspect]
     Dosage: 2X DAILY

REACTIONS (2)
  - MULTIPLE DRUG OVERDOSE INTENTIONAL [None]
  - SUICIDE ATTEMPT [None]
